FAERS Safety Report 5656193-1 (Version None)
Quarter: 2008Q1

REPORT INFORMATION
  Report Type: 
  Country: None (occurrence: None)
  Receive Date: 20080308
  Receipt Date: 20080229
  Transmission Date: 20080703
  Serious: Yes (Other)
  Sender: FDA-Public Use
  Company Number: US-ELI_LILLY_AND_COMPANY-US200803000109

PATIENT
  Age: 65 Year
  Sex: Female

DRUGS (2)
  1. ZYPREXA [Suspect]
     Indication: PARANOIA
     Dosage: 2.5 MG, UNK
     Dates: start: 20030101
  2. PROZAC [Suspect]
     Indication: PARANOIA
     Dosage: 40 MG, UNK
     Dates: start: 20030101

REACTIONS (1)
  - BREAST CANCER [None]
